FAERS Safety Report 21529260 (Version 11)
Quarter: 2024Q4

REPORT INFORMATION
  Report Type: Spontaneous
  Country: US (occurrence: US)
  Receive Date: 20221031
  Receipt Date: 20241202
  Transmission Date: 20250114
  Serious: Yes (Hospitalization, Other)
  Sender: PFIZER
  Company Number: US-PFIZER INC-2019265071

PATIENT
  Age: 52 Year
  Sex: Female
  Weight: 49.9 kg

DRUGS (3)
  1. ESTRING [Suspect]
     Active Substance: ESTRADIOL
     Indication: Contraception
     Dosage: 2 MG, MONTHLY (7.5 MCG/24 HOUR)
     Route: 067
     Dates: end: 202010
  2. ESTRING [Suspect]
     Active Substance: ESTRADIOL
     Indication: Dyspareunia
     Dosage: INSERT 1 VAGINAL RING(S) BY VAGINAL ROUTE FOR 90 DAYS
     Route: 067
  3. ESTRING [Suspect]
     Active Substance: ESTRADIOL
     Indication: Hormone level abnormal

REACTIONS (6)
  - Cardiac failure [Unknown]
  - Loss of consciousness [Unknown]
  - Therapeutic response unexpected [Unknown]
  - Stress [Unknown]
  - Food poisoning [Unknown]
  - Off label use [Unknown]
